FAERS Safety Report 8503124-2 (Version None)
Quarter: 2012Q3

REPORT INFORMATION
  Report Type: 
  Country: None (occurrence: None)
  Receive Date: 20120711
  Receipt Date: 20120706
  Transmission Date: 20120928
  Serious: No
  Sender: FDA-Public Use
  Company Number: US-PFIZER INC-9604008

PATIENT
  Age: 47 Year
  Sex: Male

DRUGS (4)
  1. CALAN [Suspect]
     Indication: HYPERTENSION
     Dosage: 180 MG, 1X/DAY
     Route: 048
  2. HYDROCHLOROTHIAZIDE [Concomitant]
     Route: 048
  3. ZOLOFT [Suspect]
     Indication: MIGRAINE
     Dosage: 100 MG, 1X/DAY
     Route: 048
     Dates: end: 19951001
  4. ZOLOFT [Suspect]
     Indication: DEPRESSION

REACTIONS (1)
  - DRUG SCREEN FALSE POSITIVE [None]
